FAERS Safety Report 7638140-6 (Version None)
Quarter: 2011Q3

REPORT INFORMATION
  Report Type: 
  Country: None (occurrence: None)
  Receive Date: 20110722
  Receipt Date: 20110722
  Transmission Date: 20111222
  Serious: No
  Sender: FDA-Public Use
  Company Number: None

PATIENT
  Sex: Male

DRUGS (1)
  1. PAROXETINE HCL [Suspect]
     Indication: DEPRESSION
     Dosage: 20MG QD PO
     Route: 048
     Dates: start: 20110716, end: 20110719

REACTIONS (6)
  - COORDINATION ABNORMAL [None]
  - IRRITABILITY [None]
  - WITHDRAWAL SYNDROME [None]
  - DIZZINESS [None]
  - PRODUCT QUALITY ISSUE [None]
  - PARAESTHESIA [None]
